FAERS Safety Report 4841898-2 (Version None)
Quarter: 2005Q4

REPORT INFORMATION
  Report Type: 
  Country: None (occurrence: None)
  Receive Date: 20051130
  Receipt Date: 20050927
  Transmission Date: 20060501
  Serious: No
  Sender: FDA-Public Use
  Company Number: US-GLAXOSMITHKLINE-A0576078A

PATIENT
  Age: 32 Year
  Sex: Male

DRUGS (4)
  1. WELLBUTRIN XL [Suspect]
     Indication: DEPRESSION
     Dosage: 300MG PER DAY
     Route: 048
     Dates: start: 20050915
  2. VALIUM [Concomitant]
  3. ALBUTEROL [Concomitant]
  4. FLOVENT [Concomitant]

REACTIONS (7)
  - EUPHORIC MOOD [None]
  - GENITAL PAIN [None]
  - PAIN IN EXTREMITY [None]
  - RETCHING [None]
  - THIRST [None]
  - TREMOR [None]
  - WEIGHT DECREASED [None]
